FAERS Safety Report 5262245-0 (Version None)
Quarter: 2007Q1

REPORT INFORMATION
  Report Type: 
  Country: None (occurrence: None)
  Receive Date: 20070308
  Receipt Date: 20070308
  Transmission Date: 20070707
  Serious: No
  Sender: FDA-Public Use
  Company Number: None

PATIENT
  Sex: Female
  Weight: 61.2356 kg

DRUGS (3)
  1. BUPROPION HCL [Suspect]
     Indication: DEPRESSION
     Dosage: 300 MG 1 PO DAILY PO
     Route: 048
     Dates: start: 20070129
  2. BUPROPION HCL [Suspect]
     Indication: DEPRESSION
     Dosage: 300 MG 1 PO DAILY PO
     Route: 048
     Dates: start: 20070302
  3. WELLBUTRIN XL [Suspect]

REACTIONS (3)
  - NAUSEA [None]
  - NERVOUSNESS [None]
  - STOMACH DISCOMFORT [None]
